FAERS Safety Report 9055470 (Version 1)
Quarter: 2013Q1

REPORT INFORMATION
  Report Type: Report from Study
  Country: PT (occurrence: PT)
  Receive Date: 20130206
  Receipt Date: 20130206
  Transmission Date: 20140127
  Serious: Yes (Other)
  Sender: FDA-Public Use
  Company Number: PT-BAYER-2012-096687

PATIENT
  Age: 30 Year
  Sex: Male

DRUGS (2)
  1. BETAFERON [Suspect]
     Indication: RELAPSING-REMITTING MULTIPLE SCLEROSIS
     Dosage: 250 ?G, QOD
     Route: 058
     Dates: start: 20100125, end: 20121120
  2. MIRTAZAPINE [Concomitant]
     Dosage: UNK

REACTIONS (4)
  - Multiple sclerosis relapse [Recovered/Resolved]
  - Monoparesis [Recovered/Resolved]
  - Balance disorder [Recovered/Resolved]
  - Multiple sclerosis [None]
